FAERS Safety Report 10570137 (Version 2)
Quarter: 2014Q4

REPORT INFORMATION
  Report Type: Spontaneous
  Country: US (occurrence: FR)
  Receive Date: 20141107
  Receipt Date: 20141118
  Transmission Date: 20150529
  Serious: Yes (Hospitalization)
  Sender: FDA-Public Use
  Company Number: 2014SP005796

PATIENT
  Age: 77 Year
  Sex: Female

DRUGS (19)
  1. DIGOXINE [Suspect]
     Active Substance: DIGOXIN
     Indication: ACUTE PULMONARY OEDEMA
     Dates: start: 201408, end: 201408
  2. PREVISCAN /00789001/ [Concomitant]
     Active Substance: FLUINDIONE
     Indication: ATRIAL FIBRILLATION
     Dates: start: 20140924
  3. TEGRETOL [Concomitant]
     Active Substance: CARBAMAZEPINE
     Indication: PRODUCT USED FOR UNKNOWN INDICATION
     Dates: start: 20140101, end: 20140920
  4. RISORDAN /00586302/ [Suspect]
     Active Substance: ISOSORBIDE DINITRATE
     Indication: RESPIRATORY DISTRESS
     Route: 042
     Dates: start: 20140815, end: 201409
  5. CORDARONE [Concomitant]
     Active Substance: AMIODARONE HYDROCHLORIDE
     Indication: ATRIAL FIBRILLATION
     Dates: start: 20140715
  6. ATROVENT [Suspect]
     Active Substance: IPRATROPIUM BROMIDE
     Indication: PRODUCT USED FOR UNKNOWN INDICATION
     Route: 055
     Dates: start: 201408, end: 201408
  7. LASILIX /00032602/ [Concomitant]
     Indication: PRODUCT USED FOR UNKNOWN INDICATION
  8. VANCOMYCIN [Suspect]
     Active Substance: VANCOMYCIN
     Indication: STAPHYLOCOCCAL INFECTION
     Dates: start: 20140825, end: 20140913
  9. PREVISCAN /00789001/ [Concomitant]
     Active Substance: FLUINDIONE
     Indication: ATRIAL FIBRILLATION
     Dates: start: 201407, end: 20140915
  10. BELLADONNA EXTRACT [Concomitant]
     Active Substance: BELLADONNA LEAF
     Indication: PRODUCT USED FOR UNKNOWN INDICATION
     Dates: start: 20140101, end: 20140920
  11. VANCOMYCIN [Suspect]
     Active Substance: VANCOMYCIN
     Dates: start: 20140825, end: 20140913
  12. DOBUTAMINE HYDROCHLORIDE. [Suspect]
     Active Substance: DOBUTAMINE HYDROCHLORIDE
     Indication: PRODUCT USED FOR UNKNOWN INDICATION
     Route: 041
     Dates: start: 201408, end: 201408
  13. BRICANYL [Suspect]
     Active Substance: TERBUTALINE SULFATE
     Indication: PRODUCT USED FOR UNKNOWN INDICATION
     Route: 055
     Dates: start: 201408, end: 201408
  14. CAFFEINE. [Concomitant]
     Active Substance: CAFFEINE
     Indication: PRODUCT USED FOR UNKNOWN INDICATION
     Dates: start: 20140101, end: 20140920
  15. LASILIX /00032602/ [Concomitant]
     Indication: PRODUCT USED FOR UNKNOWN INDICATION
  16. GENTAMICIN SULPHATE [Suspect]
     Active Substance: GENTAMICIN SULFATE
     Indication: STAPHYLOCOCCAL INFECTION
     Route: 042
     Dates: start: 20140825, end: 20140913
  17. PHENOBARBITAL. [Concomitant]
     Active Substance: PHENOBARBITAL
     Indication: PRODUCT USED FOR UNKNOWN INDICATION
     Dates: start: 20140101, end: 20140920
  18. RAMIPRIL. [Suspect]
     Active Substance: RAMIPRIL
     Indication: ACUTE PULMONARY OEDEMA
     Route: 048
     Dates: start: 201408, end: 201408
  19. EUPRESSYL /00631801/ [Suspect]
     Active Substance: URAPIDIL
     Indication: HYPERTENSION
     Route: 042
     Dates: start: 20140815, end: 20140820

REACTIONS (12)
  - Leukocytosis [Recovered/Resolved]
  - Eczema [Recovered/Resolved]
  - Hyperthermia [Recovered/Resolved]
  - Stasis dermatitis [Recovered/Resolved]
  - Skin exfoliation [Recovered/Resolved]
  - Rash [Recovered/Resolved]
  - Nodule [Recovered/Resolved]
  - Drug reaction with eosinophilia and systemic symptoms [Recovered/Resolved]
  - Pruritus [Recovered/Resolved]
  - Dermatitis exfoliative [Recovered/Resolved]
  - Renal failure [Recovered/Resolved]
  - Overdose [Unknown]

NARRATIVE: CASE EVENT DATE: 20140915
